FAERS Safety Report 4811768-4 (Version None)
Quarter: 2005Q4

REPORT INFORMATION
  Report Type: 
  Country: None (occurrence: None)
  Receive Date: 20051028
  Receipt Date: 20050908
  Transmission Date: 20060501
  Serious: Yes (Hospitalization)
  Sender: FDA-Public Use
  Company Number: DE-BOEHRINGER INGELHEIM PHARMACEUTICALS, INC.-2005-DE-03782DE

PATIENT
  Sex: Male

DRUGS (8)
  1. SIFROL [Suspect]
     Indication: PARKINSON'S DISEASE
     Route: 048
     Dates: start: 20041001
  2. SIFROL [Suspect]
     Indication: TREMOR
  3. SELEGILINE HCL [Concomitant]
     Indication: PARKINSON'S DISEASE
     Route: 048
     Dates: start: 20041001
  4. DETROL [Concomitant]
     Indication: MICTURITION URGENCY
     Route: 048
     Dates: start: 20050701
  5. TREGOR [Concomitant]
     Route: 048
     Dates: start: 20041001
  6. TRAZODON [Concomitant]
     Route: 048
     Dates: start: 20041001
  7. DETROL [Concomitant]
     Route: 048
     Dates: start: 20041001
  8. SELEGAM [Concomitant]
     Route: 048

REACTIONS (5)
  - DELINQUENCY [None]
  - PATHOLOGICAL GAMBLING [None]
  - PERSONALITY DISORDER [None]
  - SUICIDE ATTEMPT [None]
  - TREATMENT NONCOMPLIANCE [None]
